FAERS Safety Report 22597210 (Version 1)
Quarter: 2023Q2

REPORT INFORMATION
  Report Type: Spontaneous
  Country: US (occurrence: None)
  Receive Date: 20230614
  Receipt Date: 20230614
  Transmission Date: 20230722
  Serious: No
  Sender: FDA-Public Use
  Company Number: US-Axsome Therapeutics, Inc.-AXS202304-000526

PATIENT
  Age: 46 Year
  Sex: Female

DRUGS (4)
  1. AUVELITY [Suspect]
     Active Substance: BUPROPION HYDROCHLORIDE\DEXTROMETHORPHAN HYDROBROMIDE
     Indication: Major depression
     Dosage: ONE DOSE
     Route: 048
  2. LAMICTAL [Concomitant]
     Active Substance: LAMOTRIGINE
     Indication: Dyssomnia
     Route: 065
  3. LAMICTAL [Concomitant]
     Active Substance: LAMOTRIGINE
  4. PRAZOSIN [Concomitant]
     Active Substance: PRAZOSIN
     Indication: Dyssomnia
     Route: 065

REACTIONS (3)
  - Thinking abnormal [Recovered/Resolved]
  - Feeling abnormal [Recovered/Resolved]
  - Memory impairment [Recovered/Resolved]
